FAERS Safety Report 23070571 (Version 9)
Quarter: 2025Q4

REPORT INFORMATION
  Report Type: Report from Study
  Country: CA (occurrence: CA)
  Receive Date: 20231016
  Receipt Date: 20251205
  Transmission Date: 20260117
  Serious: Yes (Death, Hospitalization, Other)
  Sender: TAKEDA
  Company Number: CA-TAKEDA-2022TUS031402

PATIENT
  Age: 73 Year
  Sex: Male
  Weight: 77 kg

DRUGS (6)
  1. HUMAN IMMUNOGLOBULIN G [Suspect]
     Active Substance: HUMAN IMMUNOGLOBULIN G
     Indication: Pneumonia bacterial
     Dosage: 10 GRAM, 1/WEEK
     Dates: start: 20180101
  2. HUMAN IMMUNOGLOBULIN G [Suspect]
     Active Substance: HUMAN IMMUNOGLOBULIN G
     Indication: Hypogammaglobulinaemia
     Dosage: 10 GRAM, 1/WEEK
  3. HUMAN IMMUNOGLOBULIN G [Suspect]
     Active Substance: HUMAN IMMUNOGLOBULIN G
     Indication: Immunodeficiency common variable
     Dosage: 10 GRAM, 1/WEEK
  4. HUMAN IMMUNOGLOBULIN G [Suspect]
     Active Substance: HUMAN IMMUNOGLOBULIN G
     Indication: Primary immunodeficiency syndrome
     Dosage: UNK, 1/WEEK
  5. HUMAN IMMUNOGLOBULIN G [Suspect]
     Active Substance: HUMAN IMMUNOGLOBULIN G
     Dosage: UNK
  6. TRAMADOL [Suspect]
     Active Substance: TRAMADOL
     Indication: Product used for unknown indication
     Dosage: UNK

REACTIONS (26)
  - Death [Fatal]
  - Staphylococcal infection [Unknown]
  - COVID-19 pneumonia [Unknown]
  - Pneumonia pneumococcal [Unknown]
  - Sepsis [Unknown]
  - Lower respiratory tract infection [Unknown]
  - Neck pain [Unknown]
  - Purulence [Recovering/Resolving]
  - Nervousness [Unknown]
  - Spinal osteoarthritis [Unknown]
  - Nerve compression [Unknown]
  - Productive cough [Unknown]
  - Herpes zoster [Unknown]
  - Haemoglobin decreased [Recovering/Resolving]
  - Vitamin B12 deficiency [Unknown]
  - Musculoskeletal discomfort [Unknown]
  - Needle issue [Unknown]
  - Night sweats [Unknown]
  - Malaise [Unknown]
  - Pain [Unknown]
  - Dyspnoea [Recovering/Resolving]
  - Arthralgia [Unknown]
  - Dizziness [Unknown]
  - Headache [Unknown]
  - Fatigue [Unknown]
  - Dyspnoea [Unknown]

NARRATIVE: CASE EVENT DATE: 20220101
